FAERS Safety Report 18443665 (Version 1)
Quarter: 2020Q4

REPORT INFORMATION
  Report Type: Report from Study
  Country: US (occurrence: US)
  Receive Date: 20201029
  Receipt Date: 20201029
  Transmission Date: 20210114
  Serious: Yes (Hospitalization)
  Sender: FDA-Public Use
  Company Number: US-EXELIXIS-CABO-20033312

PATIENT
  Age: 44 Year
  Sex: Male

DRUGS (1)
  1. CABOMETYX [Suspect]
     Active Substance: CABOZANTINIB S-MALATE
     Indication: RENAL CANCER
     Dosage: 40 MG, QD
     Route: 048
     Dates: start: 20200810

REACTIONS (4)
  - Lymphadenopathy [Unknown]
  - Upper respiratory tract infection [Unknown]
  - Abdominal pain [Unknown]
  - Lymph node pain [Unknown]

NARRATIVE: CASE EVENT DATE: 20200920
